FAERS Safety Report 6712983-5 (Version None)
Quarter: 2010Q2

REPORT INFORMATION
  Report Type: 
  Country: None (occurrence: None)
  Receive Date: 20100506
  Receipt Date: 20100427
  Transmission Date: 20101027
  Serious: Yes (Death, Other)
  Sender: FDA-Public Use
  Company Number: FR-BRISTOL-MYERS SQUIBB COMPANY-15090558

PATIENT
  Age: 63 Year
  Sex: Male

DRUGS (1)
  1. GLUCOPHAGE [Suspect]
     Route: 048
     Dates: end: 20100228

REACTIONS (4)
  - GASTROENTERITIS [None]
  - HAEMOPTYSIS [None]
  - ISCHAEMIC STROKE [None]
  - LACTIC ACIDOSIS [None]
